FAERS Safety Report 24579066 (Version 4)
Quarter: 2024Q4

REPORT INFORMATION
  Report Type: Spontaneous
  Country: CZ (occurrence: CZ)
  Receive Date: 20241105
  Receipt Date: 20241204
  Transmission Date: 20250114
  Serious: Yes (Other)
  Sender: ROCHE
  Company Number: CZ-ROCHE-10000122414

PATIENT
  Age: 66 Year
  Sex: Male

DRUGS (9)
  1. TRASTUZUMAB [Suspect]
     Active Substance: TRASTUZUMAB
     Indication: Adenocarcinoma
     Route: 065
  2. TRASTUZUMAB [Suspect]
     Active Substance: TRASTUZUMAB
     Indication: Gallbladder cancer
  3. CAPECITABINE [Suspect]
     Active Substance: CAPECITABINE
     Indication: Adenocarcinoma
     Route: 065
  4. PEMBROLIZUMAB [Suspect]
     Active Substance: PEMBROLIZUMAB
     Indication: Adenocarcinoma
     Route: 065
  5. TRASTUZUMAB DERUXTECAN [Suspect]
     Active Substance: TRASTUZUMAB DERUXTECAN
     Indication: Adenocarcinoma
     Route: 065
  6. TUCATINIB [Suspect]
     Active Substance: TUCATINIB
     Indication: Adenocarcinoma
     Route: 065
     Dates: start: 202312
  7. GEMCITABINE [Suspect]
     Active Substance: GEMCITABINE
     Indication: Adenocarcinoma
     Route: 065
  8. CLINDAMYCIN [Concomitant]
     Active Substance: CLINDAMYCIN
  9. DEXAMETHASONE [Concomitant]
     Active Substance: DEXAMETHASONE

REACTIONS (4)
  - Autoimmune hypothyroidism [Unknown]
  - Off label use [Unknown]
  - Metastases to central nervous system [Unknown]
  - Fine motor skill dysfunction [Unknown]
